FAERS Safety Report 11613717 (Version 6)
Quarter: 2016Q3

REPORT INFORMATION
  Report Type: Report from Study
  Country: CO (occurrence: CO)
  Receive Date: 20151008
  Receipt Date: 20160917
  Transmission Date: 20161109
  Serious: Yes (Life-Threatening, Hospitalization, Other)
  Sender: FDA-Public Use
  Company Number: PHHY2015CO121226

PATIENT
  Age: 43 Year
  Sex: Female
  Weight: 51 kg

DRUGS (4)
  1. GLIVEC [Suspect]
     Active Substance: IMATINIB MESYLATE
     Indication: CHRONIC MYELOID LEUKAEMIA
     Dosage: 400 MG, QD
     Route: 047
     Dates: start: 20120614
  2. GLIVEC [Suspect]
     Active Substance: IMATINIB MESYLATE
     Dosage: 400 MG, QD
     Route: 048
     Dates: start: 20120627
  3. ATORVASTATINE//ATORVASTATIN [Concomitant]
     Indication: PRODUCT USED FOR UNKNOWN INDICATION
     Dosage: 40 MG, QD
     Route: 048
  4. OMEPRAZOLE. [Concomitant]
     Active Substance: OMEPRAZOLE
     Indication: GASTRITIS
     Route: 065

REACTIONS (12)
  - Thrombosis [Unknown]
  - Pain [Unknown]
  - Cerebral infarction [Unknown]
  - Feeling of despair [Unknown]
  - Foot deformity [Unknown]
  - Foot fracture [Unknown]
  - Drug dispensing error [Unknown]
  - Ankle fracture [Unknown]
  - Feeling abnormal [Not Recovered/Not Resolved]
  - Tibia fracture [Unknown]
  - Incorrect route of drug administration [Unknown]
  - Cerebral thrombosis [Unknown]

NARRATIVE: CASE EVENT DATE: 20120614
